FAERS Safety Report 24041227 (Version 1)
Quarter: 2024Q3

REPORT INFORMATION
  Report Type: Spontaneous
  Country: GB (occurrence: GB)
  Receive Date: 20240702
  Receipt Date: 20240702
  Transmission Date: 20241017
  Serious: Yes (Other)
  Sender: TEVA
  Company Number: None

PATIENT
  Sex: Female

DRUGS (1)
  1. LEVOTHYROXINE [Suspect]
     Active Substance: LEVOTHYROXINE\LEVOTHYROXINE SODIUM
     Indication: Hypothyroidism
     Dosage: TEVA UK LEVOTHYROXINE
     Route: 065
     Dates: start: 20230401, end: 20240601

REACTIONS (7)
  - Angioedema [Recovering/Resolving]
  - Dyspnoea [Not Recovered/Not Resolved]
  - Arthralgia [Recovering/Resolving]
  - Parosmia [Not Recovered/Not Resolved]
  - Urticaria [Recovering/Resolving]
  - Skin burning sensation [Recovering/Resolving]
  - Diarrhoea [Recovering/Resolving]

NARRATIVE: CASE EVENT DATE: 20230401
